FAERS Safety Report 15256384 (Version 3)
Quarter: 2018Q3

REPORT INFORMATION
  Report Type: Spontaneous
  Country: NL (occurrence: NL)
  Receive Date: 20180808
  Receipt Date: 20180824
  Transmission Date: 20181010
  Serious: Yes (Other)
  Sender: FDA-Public Use
  Company Number: NL-GLAXOSMITHKLINE-NL2018139644

PATIENT
  Age: 79 Year
  Sex: Male

DRUGS (4)
  1. CODEINE PHOSPHATE [Suspect]
     Active Substance: CODEINE PHOSPHATE
     Indication: COUGH
     Dosage: 10 MG, UNK
     Route: 048
  2. PREDNISONE. [Suspect]
     Active Substance: PREDNISONE
     Indication: CHRONIC OBSTRUCTIVE PULMONARY DISEASE
     Dosage: UNK
     Route: 065
  3. FLUTICASONE PROPIONATE. [Suspect]
     Active Substance: FLUTICASONE PROPIONATE
     Indication: SINUSITIS
     Dosage: 50 MICROG/DOSE, 2 DD 1 SPRAY
     Route: 006
  4. BUDESONIDE + FORMOTEROL [Suspect]
     Active Substance: BUDESONIDE\FORMOTEROL
     Indication: PRODUCT USED FOR UNKNOWN INDICATION
     Dosage: 1 DF, BID
     Route: 055

REACTIONS (9)
  - Psychomotor hyperactivity [Recovering/Resolving]
  - Distractibility [Recovering/Resolving]
  - Agitation [Recovering/Resolving]
  - Drug hypersensitivity [Unknown]
  - Insomnia [Recovering/Resolving]
  - Hypomania [Recovered/Resolved]
  - Inappropriate affect [Recovering/Resolving]
  - Euphoric mood [Recovering/Resolving]
  - Disinhibition [Recovering/Resolving]
